FAERS Safety Report 11213426 (Version 2)
Quarter: 2015Q2

REPORT INFORMATION
  Report Type: Spontaneous
  Country: US (occurrence: US)
  Receive Date: 20150623
  Receipt Date: 20150629
  Transmission Date: 20150821
  Serious: Yes (Other)
  Sender: FDA-Public Use
  Company Number: CHPA2015US007377

PATIENT
  Age: 75 Year
  Sex: Female

DRUGS (1)
  1. VOLTAREN [Suspect]
     Active Substance: DICLOFENAC SODIUM
     Indication: ARTHRITIS
     Dosage: 2 G, BID TO TID
     Route: 061
     Dates: end: 20150509

REACTIONS (9)
  - Wound haemorrhage [Recovered/Resolved]
  - Wound secretion [Recovering/Resolving]
  - Impaired healing [Recovering/Resolving]
  - Application site reaction [Recovering/Resolving]
  - Incorrect dose administered [Unknown]
  - Inappropriate schedule of drug administration [Unknown]
  - Pain [Recovering/Resolving]
  - Skin wound [Recovering/Resolving]
  - Condition aggravated [Recovered/Resolved]

NARRATIVE: CASE EVENT DATE: 201505
